FAERS Safety Report 23810026 (Version 1)
Quarter: 2024Q2

REPORT INFORMATION
  Report Type: Report from Study
  Country: BR (occurrence: BR)
  Receive Date: 20240502
  Receipt Date: 20240502
  Transmission Date: 20240715
  Serious: Yes (Other)
  Sender: FDA-Public Use
  Company Number: BR-JNJFOC-20240479128

PATIENT
  Age: 61 Year
  Sex: Female

DRUGS (3)
  1. SIMPONI [Suspect]
     Active Substance: GOLIMUMAB
     Indication: Rheumatoid arthritis
     Route: 058
     Dates: start: 20171015
  2. SIMPONI [Suspect]
     Active Substance: GOLIMUMAB
  3. DICLOFENAC [Suspect]
     Active Substance: DICLOFENAC
     Indication: Rheumatoid arthritis
     Route: 048

REACTIONS (8)
  - Rheumatoid arthritis [Unknown]
  - Candida infection [Recovering/Resolving]
  - Sinusitis [Recovering/Resolving]
  - Anaemia [Unknown]
  - Palpitations [Not Recovered/Not Resolved]
  - Hypertension [Recovering/Resolving]
  - Decreased immune responsiveness [Unknown]
  - Cough [Unknown]
